FAERS Safety Report 7454496-1 (Version None)
Quarter: 2011Q2

REPORT INFORMATION
  Report Type: 
  Country: None (occurrence: None)
  Receive Date: 20110503
  Receipt Date: 20110419
  Transmission Date: 20111010
  Serious: Yes (Hospitalization, Other)
  Sender: FDA-Public Use
  Company Number: PHHY2011US02109

PATIENT
  Sex: Female

DRUGS (3)
  1. SYNTHROID [Concomitant]
     Route: 048
  2. SIMVASTATIN [Concomitant]
     Route: 048
  3. RECLAST [Suspect]
     Indication: OSTEOPOROSIS
     Dosage: 5 MG, YEARLY
     Route: 042
     Dates: start: 20100818

REACTIONS (8)
  - PAIN [None]
  - CHEST PAIN [None]
  - DRUG INEFFECTIVE [None]
  - BACK PAIN [None]
  - INFLUENZA LIKE ILLNESS [None]
  - MYOCARDIAL INFARCTION [None]
  - PYREXIA [None]
  - PARALYSIS [None]
